FAERS Safety Report 23082461 (Version 1)
Quarter: 2023Q4

REPORT INFORMATION
  Report Type: Spontaneous
  Country: US (occurrence: US)
  Receive Date: 20231019
  Receipt Date: 20231019
  Transmission Date: 20240110
  Serious: Yes (Other)
  Sender: FDA-Public Use
  Company Number: US-ALEMBIC PHARMACUETICALS LIMITED-2023SCAL000888

PATIENT

DRUGS (1)
  1. FLUOROURACIL [Suspect]
     Active Substance: FLUOROURACIL
     Indication: Gastrointestinal cancer metastatic
     Dosage: UNK
     Route: 065

REACTIONS (3)
  - Cardiomyopathy [Recovering/Resolving]
  - Cardiotoxicity [Recovering/Resolving]
  - Arteriospasm coronary [Recovering/Resolving]
